FAERS Safety Report 19744387 (Version 1)
Quarter: 2021Q3

REPORT INFORMATION
  Report Type: Spontaneous
  Country: US (occurrence: US)
  Receive Date: 20210825
  Receipt Date: 20210825
  Transmission Date: 20211014
  Serious: No
  Sender: FDA-Public Use
  Company Number: US-PERRIGO-20US011796

PATIENT
  Age: 51 Year
  Sex: Female
  Weight: 68.03 kg

DRUGS (3)
  1. EVAMIST [Suspect]
     Active Substance: ESTRADIOL
     Indication: HOT FLUSH
     Dosage: 1.53 MG, NIGHTLY
     Route: 062
     Dates: start: 202006, end: 20200807
  2. EVAMIST [Suspect]
     Active Substance: ESTRADIOL
     Dosage: UNKNOWN, NIGHTLY
     Route: 062
     Dates: start: 20200813
  3. EVAMIST [Suspect]
     Active Substance: ESTRADIOL
     Dosage: 1.53 MG, NIGHTLY
     Route: 062
     Dates: start: 20200808, end: 20200812

REACTIONS (2)
  - Inappropriate schedule of product administration [Not Recovered/Not Resolved]
  - Incorrect dose administered [Not Recovered/Not Resolved]

NARRATIVE: CASE EVENT DATE: 202006
